FAERS Safety Report 6507385-0 (Version None)
Quarter: 2009Q4

REPORT INFORMATION
  Report Type: 
  Country: None (occurrence: None)
  Receive Date: 20091221
  Receipt Date: 20091210
  Transmission Date: 20100525
  Serious: Yes (Other)
  Sender: FDA-Public Use
  Company Number: DE-ROCHE-675351

PATIENT
  Age: 52 Year
  Sex: Female

DRUGS (1)
  1. HERCEPTIN [Suspect]
     Indication: BREAST CANCER
     Dosage: LAST APPLICATION PRIOR TO THE EVENT WAS AFTER 30-NOV-2009
     Route: 065
     Dates: start: 20090908

REACTIONS (1)
  - CEREBROVASCULAR ACCIDENT [None]
